FAERS Safety Report 10335852 (Version 1)
Quarter: 2014Q3

REPORT INFORMATION
  Report Type: Spontaneous
  Country: US (occurrence: US)
  Receive Date: 20140723
  Receipt Date: 20140723
  Transmission Date: 20150326
  Serious: No
  Sender: FDA-Public Use
  Company Number: US-BRISTOL-MYERS SQUIBB COMPANY-19158542

PATIENT
  Sex: Female

DRUGS (6)
  1. VITAMIN B [Concomitant]
     Active Substance: VITAMIN B
  2. COUMADIN [Suspect]
     Active Substance: WARFARIN SODIUM
     Dosage: 1DF=2.5 UNITS NOT SPECIFIED DOSE INCREAD TO 3.75 AGAIN INC TO 5
     Dates: start: 20130621
  3. DIGOXIN. [Concomitant]
     Active Substance: DIGOXIN
  4. CARDIZEM [Concomitant]
     Active Substance: DILTIAZEM HYDROCHLORIDE
  5. MAGNESIUM [Concomitant]
     Active Substance: MAGNESIUM
  6. ZINC [Concomitant]
     Active Substance: ZINC\ZINC CHLORIDE

REACTIONS (1)
  - International normalised ratio fluctuation [Unknown]
